FAERS Safety Report 9854896 (Version 1)
Quarter: 2014Q1

REPORT INFORMATION
  Report Type: Spontaneous
  Country: US (occurrence: US)
  Receive Date: 20140130
  Receipt Date: 20140130
  Transmission Date: 20141002
  Serious: No
  Sender: FDA-Public Use
  Company Number: US-009507513-1401USA013252

PATIENT
  Age: 59 Year
  Sex: Female

DRUGS (6)
  1. DULERA [Suspect]
     Indication: ASTHMA
     Dosage: 200 MICROGRAM, BID
     Dates: start: 201206
  2. DULERA [Suspect]
     Indication: CHRONIC OBSTRUCTIVE PULMONARY DISEASE
     Dosage: 200 MICROGRAM, BID
     Dates: start: 201206
  3. DUONEB [Concomitant]
     Dosage: UNK
  4. ASMANEX TWISTHALER [Concomitant]
     Dosage: UNK
  5. SINGULAIR [Concomitant]
     Dosage: UNK
  6. SYNTHROID [Concomitant]
     Dosage: UNK

REACTIONS (4)
  - Dyspnoea [Not Recovered/Not Resolved]
  - Malaise [Not Recovered/Not Resolved]
  - Otorrhoea [Not Recovered/Not Resolved]
  - Product quality issue [Not Recovered/Not Resolved]
